FAERS Safety Report 8051547 (Version 2)
Quarter: 2013Q3

REPORT INFORMATION
  Report Type: Spontaneous
  Country: US (occurrence: US)
  Receive Date: 20110725
  Receipt Date: 20130802
  Transmission Date: 20140515
  Serious: No
  Sender: FDA-Public Use
  Company Number: US-BRISTOL-MYERS SQUIBB COMPANY-15771827

PATIENT
  Age: 72 Year
  Sex: Female
  Weight: 77.1 kg

DRUGS (4)
  1. COUMADIN [Suspect]
     Indication: ATRIAL FIBRILLATION
     Dosage: 1 DF= 5 MG 4 DAYS A WEEK AND 7.5 MG THE REMAINING DAYS EACH WEEK
  2. LANOXIN [Concomitant]
  3. LOPRESSOR [Concomitant]
  4. ASPIRIN [Concomitant]

REACTIONS (6)
  - Alopecia [Unknown]
  - Asthenia [Unknown]
  - Arthralgia [Unknown]
  - Chills [Unknown]
  - Confusional state [Unknown]
  - Myalgia [Unknown]
